FAERS Safety Report 9518375 (Version 1)
Quarter: 2013Q1

REPORT INFORMATION
  Report Type: Spontaneous
  Country: US (occurrence: None)
  Receive Date: 20130305
  Receipt Date: 20130305
  Transmission Date: 20140127
  Serious: Yes (Other)
  Sender: FDA-Public Use
  Company Number: 163-21880-12081078

PATIENT
  Age: 63 Year
  Sex: Female

DRUGS (15)
  1. REVLIMID [Suspect]
     Indication: PLASMA CELL MYELOMA
     Dosage: 10 MG, 1 IN 1 D, PO
     Route: 048
     Dates: start: 20100903, end: 20110317
  2. ASPIRIN (ACETYLSALICYLIC ACID) (CHEWABLE TABLET) [Concomitant]
  3. GABAPENTIN (GABAPENTIN) (CAPSULES) [Concomitant]
  4. POTASSIUM (POTASSIUM) (TABLETS) [Concomitant]
  5. ACYCLOVIR (ACICLOVIR) (TABLETS) [Concomitant]
  6. COUMADIN (WARFARIN SODIUM) (TABLETS) [Concomitant]
  7. FISH OIL (FISH OIL) (CAPSULES) [Concomitant]
  8. SYNTHROID (LEVOTHYROXINE SODIUM) (TABLETS) [Concomitant]
  9. CELEBREX (CELECOXIB) (CAPSULES) [Concomitant]
  10. PLAVIX (CLOPIDOGREL SULFATE) (TABLETS) [Concomitant]
  11. METFORMIN (METFORMIN) (TABLETS) [Concomitant]
  12. COLACE (DOCUSATE SODIUM) (CAPSULES) [Concomitant]
  13. CALCIUM (CALCIUM) (TABLETS) [Concomitant]
  14. NAPROXEN (NAPROXEN) (TABLETS) [Concomitant]
  15. HYDROCHLOROTHIAZIDE (HYDROCHLOROTHIAZIDE) (UNKNOWN) [Concomitant]

REACTIONS (1)
  - Drug ineffective [None]
